FAERS Safety Report 16039075 (Version 1)
Quarter: 2019Q1

REPORT INFORMATION
  Report Type: Spontaneous
  Country: US (occurrence: US)
  Receive Date: 20190306
  Receipt Date: 20190306
  Transmission Date: 20190418
  Serious: No
  Sender: FDA-Public Use
  Company Number: US-BAYER-2019-032032

PATIENT
  Sex: Male
  Weight: 4.54 kg

DRUGS (1)
  1. CIPRO [Suspect]
     Active Substance: CIPROFLOXACIN HYDROCHLORIDE
     Indication: SKIN DISORDER
     Dosage: 500 MG, BID
     Route: 048

REACTIONS (4)
  - Vein discolouration [Recovering/Resolving]
  - Headache [Recovering/Resolving]
  - Facial pain [Recovering/Resolving]
  - Fatigue [Recovering/Resolving]
